FAERS Safety Report 20831879 (Version 1)
Quarter: 2022Q2

REPORT INFORMATION
  Report Type: Spontaneous
  Country: PT (occurrence: PT)
  Receive Date: 20220516
  Receipt Date: 20220516
  Transmission Date: 20220721
  Serious: Yes (Hospitalization, Other)
  Sender: FDA-Public Use
  Company Number: PT-JNJFOC-20220458713

PATIENT
  Age: 33 Year
  Sex: Male

DRUGS (5)
  1. LORAZEPAM [Suspect]
     Active Substance: LORAZEPAM
     Indication: Schizophrenia
     Dosage: 2.5 MILLIGRAM
     Route: 065
     Dates: start: 2008
  2. LORAZEPAM [Suspect]
     Active Substance: LORAZEPAM
     Dosage: 5 MILLIGRAM
     Route: 065
     Dates: start: 2017
  3. HALOPERIDOL DECANOATE [Suspect]
     Active Substance: HALOPERIDOL DECANOATE
     Indication: Schizophrenia
     Dosage: 100 MILLIGRAM, EVERY MONTH
     Route: 030
     Dates: start: 2008
  4. HALOPERIDOL DECANOATE [Suspect]
     Active Substance: HALOPERIDOL DECANOATE
     Dosage: 100 MILLIGRAM, EVERY MONTH
     Route: 030
     Dates: start: 2017
  5. ZOTEPINE [Suspect]
     Active Substance: ZOTEPINE
     Indication: Schizophrenia
     Dosage: 150 MILLIGRAM
     Route: 065

REACTIONS (11)
  - Psychotic symptom [Unknown]
  - Hallucination, auditory [Unknown]
  - Soliloquy [Unknown]
  - Negative symptoms in schizophrenia [Unknown]
  - Thought insertion [Unknown]
  - Neologism [Unknown]
  - Somatic hallucination [Unknown]
  - Thinking abnormal [Unknown]
  - Abnormal behaviour [Unknown]
  - Mixed delusion [Unknown]
  - Incoherent [Recovering/Resolving]

NARRATIVE: CASE EVENT DATE: 20170101
